FAERS Safety Report 25759066 (Version 2)
Quarter: 2025Q4

REPORT INFORMATION
  Report Type: Spontaneous
  Country: GB (occurrence: GB)
  Receive Date: 20250904
  Receipt Date: 20251007
  Transmission Date: 20260118
  Serious: Yes (Other)
  Sender: ACCORD
  Company Number: GB-Accord-502752

PATIENT
  Age: 67 Year
  Sex: Male

DRUGS (2)
  1. MYCOPHENOLATE MOFETIL [Suspect]
     Active Substance: MYCOPHENOLATE MOFETIL
     Indication: Respiratory failure
  2. PREDNISOLONE [Concomitant]
     Active Substance: PREDNISOLONE
     Indication: Respiratory failure
     Route: 048

REACTIONS (2)
  - Drug-induced liver injury [Unknown]
  - Off label use [Unknown]
